FAERS Safety Report 7601999-2 (Version None)
Quarter: 2011Q3

REPORT INFORMATION
  Report Type: 
  Country: None (occurrence: None)
  Receive Date: 20110711
  Receipt Date: 20110707
  Transmission Date: 20111222
  Serious: Yes (Death, Hospitalization, Other)
  Sender: FDA-Public Use
  Company Number: GB-PFIZER INC-2011139714

PATIENT
  Age: 46 Year
  Sex: Female

DRUGS (1)
  1. LYRICA [Suspect]
     Indication: NEUROPATHY PERIPHERAL
     Dosage: UNK
     Dates: start: 20110601

REACTIONS (5)
  - CARDIAC FAILURE CONGESTIVE [None]
  - HYPOXIA [None]
  - TACHYCARDIA [None]
  - DYSPNOEA [None]
  - DEATH [None]
